FAERS Safety Report 7076666-7 (Version None)
Quarter: 2010Q4

REPORT INFORMATION
  Report Type: 
  Country: None (occurrence: None)
  Receive Date: 20101101
  Receipt Date: 20101028
  Transmission Date: 20110411
  Serious: No
  Sender: FDA-Public Use
  Company Number: US-PFIZER INC-2010137855

PATIENT
  Sex: Male
  Weight: 68.03 kg

DRUGS (9)
  1. XANAX [Suspect]
     Indication: NERVOUSNESS
     Dosage: 1 MG, 3X/DAY
     Route: 048
  2. ADVAIR DISKUS 100/50 [Concomitant]
     Indication: ASTHMA
     Dosage: TWO TIMES A DAY
  3. MONTELUKAST SODIUM [Concomitant]
     Indication: ASTHMA
     Dosage: DAILY
     Route: 048
  4. MAXALT [Concomitant]
     Indication: ASTHMA
     Dosage: UNK
  5. SPIRIVA [Concomitant]
     Indication: ASTHMA
     Dosage: DAILY
  6. PAXIL CR [Concomitant]
     Indication: NERVOUSNESS
     Dosage: 75 MG, 1X/DAY
     Route: 048
  7. PAXIL CR [Concomitant]
     Indication: DEPRESSION
  8. ZYPREXA [Concomitant]
     Indication: NERVOUSNESS
     Dosage: UNK
     Route: 048
  9. ZYPREXA [Concomitant]
     Indication: DEPRESSION

REACTIONS (1)
  - DRUG INEFFECTIVE [None]
